FAERS Safety Report 8119261-0 (Version None)
Quarter: 2011Q4

REPORT INFORMATION
  Report Type: 
  Country: None (occurrence: None)
  Receive Date: 20111227
  Receipt Date: 20111012
  Transmission Date: 20120403
  Serious: No
  Sender: FDA-Public Use
  Company Number: PHEH2011US05686

PATIENT
  Age: 39 Year
  Sex: Female

DRUGS (20)
  1. FLONASE [Concomitant]
  2. ANTACIDS (NO INGREDIENTS/SUBSTANCES) TABLET [Concomitant]
  3. SINGULAIR [Concomitant]
  4. AMPHETAMINE SALTS (AMFETAMINE SULFATE),  20 MG [Concomitant]
  5. HYDROCODONE (HYDROCODONE) TABLET [Concomitant]
  6. OMEPRAZOLE [Concomitant]
  7. VITAMIN D [Concomitant]
  8. VIACTIV (CALCIUM) [Concomitant]
  9. MELOXICAM (MELOXICAM), 15 MG [Concomitant]
  10. GILENYA [Suspect]
     Indication: RELAPSING-REMITTING MULTIPLE SCLEROSIS
     Dosage: 0.5 MG, QD, ORAL
     Route: 048
     Dates: start: 20110921
  11. MULTIVITAMIN AND MINERAL SUPPLEMENT (MINERALS NOS, VITAMINS NOS) [Concomitant]
  12. NASAL SALINE (SODIUM CHLORIDE) SPRAY [Concomitant]
  13. RETIN-A [Concomitant]
  14. DIAZEPAM [Concomitant]
  15. VERAPAMIL (VERAPAMIL), 180 MG [Concomitant]
  16. RISPERIDONE (RISPERIDONE) TABLET, 0.5 MG [Concomitant]
  17. FAMPRIDINE (FAMPRIDINE) [Suspect]
     Indication: GAIT DISTURBANCE
     Dosage: UNK UKN, QD, ORAL
     Route: 048
     Dates: start: 20110921, end: 20110928
  18. LORAZEPAM [Concomitant]
  19. CYMBALTA [Concomitant]
  20. TYLENOL (PARACETAMOL), 500 MG [Concomitant]

REACTIONS (3)
  - DIZZINESS [None]
  - PAIN [None]
  - FATIGUE [None]
